FAERS Safety Report 10554569 (Version 6)
Quarter: 2015Q4

REPORT INFORMATION
  Report Type: Spontaneous
  Country: US (occurrence: US)
  Receive Date: 20141030
  Receipt Date: 20151023
  Transmission Date: 20160304
  Serious: Yes (Other)
  Sender: FDA-Public Use
  Company Number: US-GLAXOSMITHKLINE-US2014GSK013693

PATIENT
  Age: 62 Year
  Sex: Female
  Weight: 63.95 kg

DRUGS (27)
  1. ALENDRONATE [Suspect]
     Active Substance: ALENDRONATE SODIUM
     Indication: OSTEOPOROSIS
     Dosage: 70 MG, WE
     Route: 048
  2. AMBIEN [Concomitant]
     Active Substance: ZOLPIDEM TARTRATE
  3. TRAMADOL. [Concomitant]
     Active Substance: TRAMADOL
  4. ZOFRAN [Concomitant]
     Active Substance: ONDANSETRON HYDROCHLORIDE
  5. VENTOLIN HFA [Suspect]
     Active Substance: ALBUTEROL SULFATE
     Indication: BRONCHITIS CHRONIC
     Dosage: 2 PUFF(S), QID
     Route: 055
     Dates: start: 2009
  6. ADVAIR DISKUS [Suspect]
     Active Substance: FLUTICASONE PROPIONATE\SALMETEROL XINAFOATE
     Dosage: 250/50
  7. VITAMIN D3 [Concomitant]
     Active Substance: CHOLECALCIFEROL
  8. DOMPERIDONE [Concomitant]
     Active Substance: DOMPERIDONE
  9. HYDROCORTISONE BUTYRATE. [Concomitant]
     Active Substance: HYDROCORTISONE BUTYRATE
  10. NORTRIPTYLINE [Concomitant]
     Active Substance: NORTRIPTYLINE
  11. PROMETHEGAN [Concomitant]
     Active Substance: PROMETHAZINE HYDROCHLORIDE
  12. ADVAIR DISKUS [Suspect]
     Active Substance: FLUTICASONE PROPIONATE\SALMETEROL XINAFOATE
     Indication: BRONCHITIS CHRONIC
     Dosage: 1 PUFF(S), BID
     Route: 055
     Dates: start: 2003
  13. ZOLOFT [Concomitant]
     Active Substance: SERTRALINE HYDROCHLORIDE
  14. ADDERALL [Concomitant]
     Active Substance: AMPHETAMINE ASPARTATE\AMPHETAMINE SULFATE\DEXTROAMPHETAMINE SACCHARATE\DEXTROAMPHETAMINE SULFATE
  15. TIZANIDINE. [Concomitant]
     Active Substance: TIZANIDINE
  16. DIAZEPAM. [Concomitant]
     Active Substance: DIAZEPAM
  17. PRAVASTATIN [Suspect]
     Active Substance: PRAVASTATIN\PRAVASTATIN SODIUM
     Indication: BLOOD CHOLESTEROL INCREASED
     Dosage: 20 MG, QD
     Route: 048
  18. PROMETHAZINE [Concomitant]
     Active Substance: PROMETHAZINE\PROMETHAZINE HYDROCHLORIDE
  19. ACETAMINOPHEN-HYDROCODONE BITARTRATE [Concomitant]
  20. ESTRADIOL. [Concomitant]
     Active Substance: ESTRADIOL
  21. VENTOLIN HFA [Suspect]
     Active Substance: ALBUTEROL SULFATE
     Indication: SEASONAL ALLERGY
     Dosage: UNK
     Dates: start: 2011
  22. MEDROXYPROGESTERONE [Concomitant]
     Active Substance: MEDROXYPROGESTERONE
  23. CYANOCOBALAMIN. [Concomitant]
     Active Substance: CYANOCOBALAMIN
  24. DIFLUCAN [Concomitant]
     Active Substance: FLUCONAZOLE
  25. CLOBETASOL PROPIONATE. [Concomitant]
     Active Substance: CLOBETASOL PROPIONATE
  26. LYRICA [Concomitant]
     Active Substance: PREGABALIN
  27. LIDOCAINE. [Concomitant]
     Active Substance: LIDOCAINE

REACTIONS (26)
  - Arthralgia [Unknown]
  - Rhinorrhoea [Unknown]
  - Fatigue [Unknown]
  - Rib fracture [Unknown]
  - Impaired gastric emptying [Unknown]
  - Overdose [Unknown]
  - Fall [Unknown]
  - Neuropathy peripheral [Unknown]
  - Atypical pneumonia [Unknown]
  - Costochondritis [Unknown]
  - Balance disorder [Unknown]
  - Malaise [Unknown]
  - Paraesthesia [Unknown]
  - Pain in extremity [Unknown]
  - Fibromyalgia [Unknown]
  - Dyspnoea [Unknown]
  - Cough [Unknown]
  - Musculoskeletal stiffness [Unknown]
  - Chest injury [Unknown]
  - Musculoskeletal chest pain [Unknown]
  - Wheezing [Unknown]
  - Muscular weakness [Unknown]
  - Myalgia [Unknown]
  - Hypoaesthesia [Unknown]
  - Upper respiratory tract infection [Unknown]
  - Bone pain [Unknown]

NARRATIVE: CASE EVENT DATE: 2010
